FAERS Safety Report 7485158-2 (Version None)
Quarter: 2011Q2

REPORT INFORMATION
  Report Type: 
  Country: None (occurrence: None)
  Receive Date: 20110517
  Receipt Date: 20110512
  Transmission Date: 20111010
  Serious: Yes (Other)
  Sender: FDA-Public Use
  Company Number: AU-ROCHE-777168

PATIENT
  Sex: Female

DRUGS (5)
  1. VALIUM [Suspect]
     Route: 048
  2. DILANTIN [Suspect]
     Route: 048
  3. MONOPRIL [Concomitant]
  4. ASPIRIN [Concomitant]
  5. VALPROATE SODIUM [Suspect]
     Route: 065

REACTIONS (11)
  - HYPOAESTHESIA [None]
  - ALOPECIA [None]
  - DRUG LEVEL ABOVE THERAPEUTIC [None]
  - APHAGIA [None]
  - WEIGHT DECREASED [None]
  - APHASIA [None]
  - DEPRESSION [None]
  - ACTIVITIES OF DAILY LIVING IMPAIRED [None]
  - NERVE INJURY [None]
  - FEELING ABNORMAL [None]
  - INSOMNIA [None]
